FAERS Safety Report 5750481-6 (Version None)
Quarter: 2008Q2

REPORT INFORMATION
  Report Type: 
  Country: None (occurrence: None)
  Receive Date: 20080528
  Receipt Date: 20080306
  Transmission Date: 20081010
  Serious: No
  Sender: FDA-Public Use
  Company Number: US-KINGPHARMUSA00001-K200800292

PATIENT

DRUGS (6)
  1. AVINZA [Suspect]
     Indication: SURGERY
     Dosage: 60 MG QD
     Route: 048
     Dates: start: 20080101, end: 20080301
  2. AVINZA [Suspect]
     Dosage: 30 MG, QD
     Route: 048
     Dates: end: 20080101
  3. NEXIUM [Concomitant]
     Indication: DYSPEPSIA
  4. PERCOCET [Concomitant]
     Indication: BREAKTHROUGH PAIN
  5. LEVOXYL [Concomitant]
  6. LIPITOR [Concomitant]
     Indication: HYPERCHOLESTEROLAEMIA

REACTIONS (8)
  - ABDOMINAL PAIN UPPER [None]
  - ANOREXIA [None]
  - DIARRHOEA [None]
  - HYPERHIDROSIS [None]
  - RESTLESSNESS [None]
  - TREMOR [None]
  - VOMITING [None]
  - WITHDRAWAL SYNDROME [None]
